FAERS Safety Report 17047090 (Version 1)
Quarter: 2019Q4

REPORT INFORMATION
  Report Type: Spontaneous
  Country: US (occurrence: US)
  Receive Date: 20191119
  Receipt Date: 20191119
  Transmission Date: 20200122
  Serious: No
  Sender: FDA-Public Use
  Company Number: US-ACCORD-072610

PATIENT
  Age: 38 Year
  Sex: Female

DRUGS (1)
  1. HYDROCHLOROTHIAZIDE ACCORD [Suspect]
     Active Substance: HYDROCHLOROTHIAZIDE
     Indication: OEDEMA
     Dosage: STARTED IN APRIL

REACTIONS (4)
  - Chest discomfort [Unknown]
  - Hypotension [Unknown]
  - Wrong product administered [Unknown]
  - Oedema [Unknown]
